FAERS Safety Report 6012473-1 (Version None)
Quarter: 2008Q4

REPORT INFORMATION
  Report Type: 
  Country: None (occurrence: None)
  Receive Date: 20081216
  Receipt Date: 20080519
  Transmission Date: 20090506
  Serious: Yes (Other)
  Sender: FDA-Public Use
  Company Number: US-WYE-H04191908

PATIENT
  Sex: Female
  Weight: 68.1 kg

DRUGS (4)
  1. EFFEXOR XR [Suspect]
     Indication: DEPRESSION
  2. ACETYLSALICYLIC ACID SRT [Concomitant]
  3. VICODIN [Concomitant]
  4. NEXIUM [Concomitant]

REACTIONS (4)
  - AMNESIA [None]
  - DIZZINESS [None]
  - DRUG WITHDRAWAL SYNDROME [None]
  - TINNITUS [None]
